FAERS Safety Report 13731672 (Version 1)
Quarter: 2017Q3

REPORT INFORMATION
  Report Type: Spontaneous
  Country: JP (occurrence: JP)
  Receive Date: 20170707
  Receipt Date: 20170707
  Transmission Date: 20171127
  Serious: Yes (Other)
  Sender: FDA-Public Use
  Company Number: JP-PFIZER INC-2017292431

PATIENT
  Age: 78 Year
  Sex: Male
  Weight: 49.5 kg

DRUGS (3)
  1. GLOBULIN (IMMUNOGLOBULIN HUMAN NORMAL) [Concomitant]
     Active Substance: HUMAN IMMUNOGLOBULIN G
     Dosage: 5 G, UNK
  2. PIPERACILLIN AND TAZOBACTAM [Concomitant]
     Active Substance: PIPERACILLIN SODIUM\TAZOBACTAM SODIUM
     Dosage: 13.5 G, DAILY
  3. LINEZOLID. [Suspect]
     Active Substance: LINEZOLID
     Dosage: 1200 MG, DAILY

REACTIONS (2)
  - Pemphigoid [Recovering/Resolving]
  - Platelet count decreased [Unknown]
